FAERS Safety Report 7997996-8 (Version None)
Quarter: 2011Q4

REPORT INFORMATION
  Report Type: 
  Country: None (occurrence: None)
  Receive Date: 20111221
  Receipt Date: 20110328
  Transmission Date: 20120403
  Serious: No
  Sender: FDA-Public Use
  Company Number: US-GLAXOSMITHKLINE-A0849997A

PATIENT
  Age: 75 Year
  Sex: Male

DRUGS (1)
  1. LOVAZA [Suspect]
     Indication: BLOOD TRIGLYCERIDES INCREASED
     Dosage: 2CAP PER DAY
     Route: 048
     Dates: start: 20100201

REACTIONS (6)
  - BLOOD TRIGLYCERIDES INCREASED [None]
  - RHINORRHOEA [None]
  - DRUG INEFFECTIVE [None]
  - WEIGHT INCREASED [None]
  - OROPHARYNGEAL PAIN [None]
  - CHEST PAIN [None]
